FAERS Safety Report 7380520-0 (Version None)
Quarter: 2011Q1

REPORT INFORMATION
  Report Type: 
  Country: None (occurrence: None)
  Receive Date: 20110329
  Receipt Date: 20091122
  Transmission Date: 20110831
  Serious: Yes (Death, Hospitalization, Other)
  Sender: FDA-Public Use
  Company Number: US-BAYER-200940582NA

PATIENT
  Sex: Male
  Weight: 79.365 kg

DRUGS (6)
  1. COUMADIN [Concomitant]
  2. LASIX [Concomitant]
  3. TRASYLOL [Suspect]
     Indication: CORONARY ARTERY BYPASS
     Dosage: UNK
     Route: 042
     Dates: start: 19981103
  4. ACETYLSALICYLIC ACID SRT [Concomitant]
  5. LANOXIN [Concomitant]
  6. LOPRESSOR [Concomitant]

REACTIONS (14)
  - MULTI-ORGAN FAILURE [None]
  - UNEVALUABLE EVENT [None]
  - PAIN [None]
  - FEAR [None]
  - RENAL IMPAIRMENT [None]
  - RENAL FAILURE [None]
  - RENAL FAILURE ACUTE [None]
  - ANHEDONIA [None]
  - EMOTIONAL DISTRESS [None]
  - INJURY [None]
  - STRESS [None]
  - ANXIETY [None]
  - DEATH [None]
  - RENAL INJURY [None]
